FAERS Safety Report 8506595-0 (Version None)
Quarter: 2012Q3

REPORT INFORMATION
  Report Type: 
  Country: None (occurrence: None)
  Receive Date: 20120712
  Receipt Date: 20120706
  Transmission Date: 20120928
  Serious: Yes (Other)
  Sender: FDA-Public Use
  Company Number: US-BAYER-2012-067944

PATIENT
  Age: 31 Year
  Sex: Female

DRUGS (1)
  1. MIRENA [Suspect]
     Indication: CONTRACEPTION
     Dosage: UNK
     Dates: start: 20100507, end: 20120625

REACTIONS (4)
  - COMPLICATION OF DEVICE REMOVAL [None]
  - ABDOMINAL PAIN [None]
  - DEVICE DISLOCATION [None]
  - PAIN [None]
